FAERS Safety Report 26073708 (Version 4)
Quarter: 2025Q4

REPORT INFORMATION
  Report Type: Spontaneous
  Country: US (occurrence: US)
  Receive Date: 20251121
  Receipt Date: 20251231
  Transmission Date: 20260118
  Serious: No
  Sender: SANDOZ
  Company Number: US-SANDOZ-SDZ2025US086455

PATIENT
  Sex: Female

DRUGS (2)
  1. GLATOPA [Suspect]
     Active Substance: GLATIRAMER ACETATE
     Indication: Product used for unknown indication
     Dosage: UNK
  2. GLATOPA [Suspect]
     Active Substance: GLATIRAMER ACETATE

REACTIONS (2)
  - Circumstance or information capable of leading to device use error [Unknown]
  - Device breakage [Unknown]
